FAERS Safety Report 6687457-0 (Version None)
Quarter: 2010Q2

REPORT INFORMATION
  Report Type: 
  Country: None (occurrence: None)
  Receive Date: 20100419
  Receipt Date: 20100406
  Transmission Date: 20101027
  Serious: Yes (Other)
  Sender: FDA-Public Use
  Company Number: CA-GENENTECH-300560

PATIENT
  Sex: Female

DRUGS (1)
  1. LUCENTIS [Suspect]
     Indication: DRUG USE FOR UNKNOWN INDICATION
     Dosage: 0.5 MG, UNK
     Route: 031
     Dates: start: 20080101

REACTIONS (4)
  - ABNORMAL SENSATION IN EYE [None]
  - BLINDNESS TRANSIENT [None]
  - EYE PAIN [None]
  - SUPERFICIAL INJURY OF EYE [None]
